FAERS Safety Report 9079910 (Version 1)
Quarter: 2013Q1

REPORT INFORMATION
  Report Type: Report from Study
  Country: US (occurrence: US)
  Receive Date: 20130130
  Receipt Date: 20130130
  Transmission Date: 20140127
  Serious: No
  Sender: FDA-Public Use
  Company Number: US-ABBOTT-12P-163-0976018-00

PATIENT
  Age: 56 Year
  Sex: Female

DRUGS (22)
  1. HUMIRA [Suspect]
     Indication: RHEUMATOID ARTHRITIS
  2. SYNTHROID [Concomitant]
     Indication: HYPOTHYROIDISM
     Dosage: DAILY
  3. SINGULAIR [Concomitant]
     Indication: HYPERSENSITIVITY
     Dosage: DAILY
  4. BENICAR HCT [Concomitant]
     Indication: HYPERTENSION
     Dosage: 40MG/12.5MG DAILY
  5. CYMBALTA [Concomitant]
     Indication: DEPRESSION
     Dosage: DAILY
  6. CYMBALTA [Concomitant]
     Indication: NEUROPATHY PERIPHERAL
  7. WELLBUTRIN [Concomitant]
     Indication: DEPRESSION
     Dosage: DAILY
  8. IMURAN [Concomitant]
     Indication: RHEUMATOID ARTHRITIS
     Dosage: 2 TABLETS DAILY
  9. NOVOLOG [Concomitant]
     Indication: DIABETES MELLITUS
     Dosage: SLIDING SCALE WITH MEALS/3 TIMES DAILY
  10. LEVEMIR [Concomitant]
     Indication: DIABETES MELLITUS
     Dosage: TWICE DAILY
  11. ATENOLOL [Concomitant]
     Indication: HYPERTENSION
     Dosage: DAILY
  12. ATENOLOL [Concomitant]
     Indication: HEART RATE
  13. PRAVACHOL [Concomitant]
     Indication: BLOOD CHOLESTEROL INCREASED
     Dosage: DAILY
  14. LYRICA [Concomitant]
     Indication: NEUROPATHY PERIPHERAL
     Dosage: 2 TABLETS TWICE DAILY
  15. LYRICA [Concomitant]
     Indication: FIBROMYALGIA
  16. AMBIEN CR [Concomitant]
     Indication: PRODUCT USED FOR UNKNOWN INDICATION
     Dosage: AT BEDTIME
  17. KLONOPIN [Concomitant]
     Indication: PRODUCT USED FOR UNKNOWN INDICATION
  18. VITAMIN D2 [Concomitant]
     Indication: PRODUCT USED FOR UNKNOWN INDICATION
     Dosage: WEEKLY
  19. HORMONE CREAM WITH PROGESTERONE [Concomitant]
     Indication: PRODUCT USED FOR UNKNOWN INDICATION
  20. TESTOSTERONE AND ESTRADIOL TOPICAL [Concomitant]
     Indication: PRODUCT USED FOR UNKNOWN INDICATION
     Dosage: APPLIED DAILY
     Route: 061
  21. VENTOLIN [Concomitant]
     Indication: HYPERSENSITIVITY
     Dosage: RESCUE INHALER
     Route: 055
  22. VENTOLIN [Concomitant]
     Indication: DYSPNOEA

REACTIONS (5)
  - Oral herpes [Recovering/Resolving]
  - Respiratory disorder [Unknown]
  - Sinus congestion [Unknown]
  - Chapped lips [Unknown]
  - Injection site pain [Not Recovered/Not Resolved]
